FAERS Safety Report 14547161 (Version 1)
Quarter: 2018Q1

REPORT INFORMATION
  Report Type: Spontaneous
  Country: US (occurrence: US)
  Receive Date: 20180219
  Receipt Date: 20180219
  Transmission Date: 20180509
  Serious: No
  Sender: FDA-Public Use
  Company Number: US-PFIZER INC-2017127266

PATIENT
  Age: 9 Year
  Sex: Female
  Weight: 33.57 kg

DRUGS (2)
  1. GENOTROPIN [Suspect]
     Active Substance: SOMATROPIN
     Indication: TURNER^S SYNDROME
     Dosage: 1 MG, DAILY
     Dates: start: 20170303
  2. GENOTROPIN [Suspect]
     Active Substance: SOMATROPIN
     Indication: GROWTH HORMONE DEFICIENCY
     Dosage: 0.8 ML, 1X/DAY

REACTIONS (4)
  - Drug dose omission [Not Recovered/Not Resolved]
  - Device issue [Unknown]
  - Peripheral swelling [Unknown]
  - Wrong dose [Unknown]
